FAERS Safety Report 15292895 (Version 1)
Quarter: 2018Q3

REPORT INFORMATION
  Report Type: Spontaneous
  Country: US (occurrence: US)
  Receive Date: 20180806
  Receipt Date: 20180806
  Transmission Date: 20181010
  Serious: No
  Sender: FDA-Public Use
  Company Number: None

PATIENT
  Age: 62 Year
  Sex: Female
  Weight: 52.65 kg

DRUGS (5)
  1. VYVANSE [Concomitant]
     Active Substance: LISDEXAMFETAMINE DIMESYLATE
  2. TRINTELLIX [Suspect]
     Active Substance: VORTIOXETINE HYDROBROMIDE
     Indication: DEPRESSION
     Dosage: ?          QUANTITY:2 TABLET(S);?
     Route: 048
     Dates: start: 20180707, end: 20180803
  3. VITAMIN D [Concomitant]
     Active Substance: CHOLECALCIFEROL
  4. IBPROPHIN [Concomitant]
  5. LYOTHYRONINE [Concomitant]

REACTIONS (13)
  - Poisoning [None]
  - Movement disorder [None]
  - Apparent death [None]
  - Feeling abnormal [None]
  - Parosmia [None]
  - Therapy change [None]
  - Fatigue [None]
  - Nausea [None]
  - Toxicity to various agents [None]
  - Nasal congestion [None]
  - Nasopharyngitis [None]
  - Dysgeusia [None]
  - Palatal swelling [None]

NARRATIVE: CASE EVENT DATE: 20180721
